FAERS Safety Report 7551146-0 (Version None)
Quarter: 2011Q2

REPORT INFORMATION
  Report Type: 
  Country: None (occurrence: None)
  Receive Date: 20110616
  Receipt Date: 20110606
  Transmission Date: 20111010
  Serious: Yes (Life-Threatening, Hospitalization)
  Sender: FDA-Public Use
  Company Number: FR-SANOFI-AVENTIS-2011SA036049

PATIENT
  Age: 65 Year
  Sex: Female

DRUGS (7)
  1. PREDNISONE [Concomitant]
     Route: 048
  2. LASIX [Concomitant]
     Route: 048
  3. CORDARONE [Concomitant]
     Route: 048
  4. ARAVA [Suspect]
     Indication: RHEUMATOID ARTHRITIS
     Route: 048
     Dates: start: 20070216, end: 20110507
  5. INSULATARD [Concomitant]
     Dosage: DOSE:100 INTERNATIONAL UNIT(S)/MILLILITRE
     Route: 058
  6. DIGOXIN [Suspect]
     Route: 048
     Dates: end: 20110507
  7. LEVOTHYROXINE SODIUM [Concomitant]
     Route: 048

REACTIONS (7)
  - HEPATIC ISCHAEMIA [None]
  - BRADYCARDIA [None]
  - ISCHAEMIC HEPATITIS [None]
  - HYPERKALAEMIA [None]
  - RENAL FAILURE ACUTE [None]
  - HYPOTENSION [None]
  - THROMBOCYTOPENIA [None]
